FAERS Safety Report 5904179-1 (Version None)
Quarter: 2008Q4

REPORT INFORMATION
  Report Type: 
  Country: None (occurrence: None)
  Receive Date: 20081001
  Receipt Date: 20080923
  Transmission Date: 20090506
  Serious: Yes (Hospitalization)
  Sender: FDA-Public Use
  Company Number: GB-TEVA-177821ISR

PATIENT
  Age: 8 Month
  Sex: Male

DRUGS (2)
  1. PROPRANOLOL [Suspect]
  2. TIMOLOL [Interacting]

REACTIONS (12)
  - ACCIDENTAL EXPOSURE [None]
  - BLOOD PRESSURE DECREASED [None]
  - DRUG INTERACTION [None]
  - DRUG LEVEL INCREASED [None]
  - HEART RATE DECREASED [None]
  - HYPOTONIA [None]
  - LETHARGY [None]
  - METABOLIC ACIDOSIS [None]
  - MIOSIS [None]
  - PERIPHERAL COLDNESS [None]
  - PULSE PRESSURE DECREASED [None]
  - RESPIRATORY RATE DECREASED [None]
